FAERS Safety Report 23306102 (Version 2)
Quarter: 2023Q4

REPORT INFORMATION
  Report Type: Other
  Country: CZ (occurrence: None)
  Receive Date: 20231218
  Receipt Date: 20231220
  Transmission Date: 20240110
  Serious: Yes (Other)
  Sender: FDA-Public Use
  Company Number: CZ-ROCHE-3476150

PATIENT
  Age: 69 Year
  Sex: Female

DRUGS (11)
  1. RITUXIMAB [Suspect]
     Active Substance: RITUXIMAB
     Indication: Chronic lymphocytic leukaemia
     Dosage: 375/500 MG/M2 FIRST LINE OF TREATMENT INCLUDED FOUR CYCLES
     Route: 042
     Dates: start: 201307, end: 201310
  2. RITUXIMAB [Suspect]
     Active Substance: RITUXIMAB
     Dosage: THE SECOND LINE OF TREATMENT
     Route: 042
     Dates: start: 201811
  3. FLUDARABINE [Suspect]
     Active Substance: FLUDARABINE PHOSPHATE
     Indication: Chronic lymphocytic leukaemia
     Dosage: FIRST LINE OF TREATMENT INCLUDED FOUR CYCLES
     Route: 065
     Dates: start: 201307, end: 201310
  4. CYCLOPHOSPHAMIDE [Suspect]
     Active Substance: CYCLOPHOSPHAMIDE
     Indication: Chronic lymphocytic leukaemia
     Dosage: FIRST LINE OF TREATMENT INCLUDED FOUR CYCLES
     Route: 065
     Dates: start: 201307, end: 201310
  5. DEXAMETHASONE [Concomitant]
     Active Substance: DEXAMETHASONE
     Indication: Chronic lymphocytic leukaemia
     Dates: start: 201401, end: 201402
  6. DEXAMETHASONE [Concomitant]
     Active Substance: DEXAMETHASONE
     Dates: start: 202212
  7. RITUXIMAB [Concomitant]
     Active Substance: RITUXIMAB
     Indication: Chronic lymphocytic leukaemia
     Dosage: 3 X 1,600 MG
     Route: 058
     Dates: start: 2018, end: 201903
  8. IDELALISIB [Concomitant]
     Active Substance: IDELALISIB
     Indication: Chronic lymphocytic leukaemia
     Dates: start: 201811
  9. ACALABRUTINIB [Concomitant]
     Active Substance: ACALABRUTINIB
     Indication: Chronic lymphocytic leukaemia
     Dosage: THIRD LINE THERAPY
     Dates: start: 202007, end: 202211
  10. ACALABRUTINIB [Concomitant]
     Active Substance: ACALABRUTINIB
     Dates: start: 202212
  11. ACALABRUTINIB [Concomitant]
     Active Substance: ACALABRUTINIB
     Dates: start: 2023

REACTIONS (1)
  - Disease progression [Recovered/Resolved]

NARRATIVE: CASE EVENT DATE: 20140101
